FAERS Safety Report 9590972 (Version 1)
Quarter: 2013Q4

REPORT INFORMATION
  Report Type: Spontaneous
  Country: GR (occurrence: GR)
  Receive Date: 20131003
  Receipt Date: 20131003
  Transmission Date: 20140711
  Serious: Yes (Other)
  Sender: FDA-Public Use
  Company Number: GR-MYLANLABS-2013S1021499

PATIENT
  Age: 22 Year
  Sex: Male

DRUGS (5)
  1. CARBOPLATIN [Suspect]
     Indication: TESTICULAR GERM CELL CANCER
     Dosage: AUC 6 MG/ML.MIN FROM DAY -6 TO DAY -3
     Route: 065
     Dates: start: 201001
  2. ETOPOSIDE [Suspect]
     Indication: TESTICULAR GERM CELL CANCER
     Dosage: 400 MG/M2/DAY FROM DAY -6 TO DAY -3
     Route: 065
     Dates: start: 201001
  3. CYCLOPHOSPHAMIDE [Suspect]
     Indication: TESTICULAR GERM CELL CANCER
     Dosage: 1.5 G/M2/DAY FROM DAY -6 TO DAY -3
     Route: 065
     Dates: start: 201001
  4. GRANULOCYTE COLONY-STIMULATING FACTOR NOS [Concomitant]
     Dosage: 480 IU/DAY
     Route: 065
  5. KEPIVANCE [Concomitant]
     Dosage: 60 MICROG/KG/DAY
     Route: 042

REACTIONS (4)
  - Neutropenia [Recovered/Resolved]
  - Thrombocytopenia [Recovered/Resolved]
  - Cystitis haemorrhagic [Unknown]
  - Mucosal inflammation [Unknown]
